FAERS Safety Report 8510015-X (Version None)
Quarter: 2012Q3

REPORT INFORMATION
  Report Type: 
  Country: None (occurrence: None)
  Receive Date: 20120713
  Receipt Date: 20120709
  Transmission Date: 20120928
  Serious: Yes (Other)
  Sender: FDA-Public Use
  Company Number: US-ABBOTT-12P-163-0946027-00

PATIENT
  Sex: Male
  Weight: 61.29 kg

DRUGS (1)
  1. ANDROGEL [Suspect]
     Indication: BLOOD TESTOSTERONE DECREASED
     Route: 061
     Dates: start: 19950101

REACTIONS (5)
  - ABDOMINAL RIGIDITY [None]
  - NERVE ROOT INJURY LUMBAR [None]
  - JOINT SWELLING [None]
  - ABDOMINAL DISTENSION [None]
  - INTERVERTEBRAL DISC DISPLACEMENT [None]
